FAERS Safety Report 12329430 (Version 1)
Quarter: 2016Q2

REPORT INFORMATION
  Report Type: Spontaneous
  Country: IT (occurrence: IT)
  Receive Date: 20160503
  Receipt Date: 20160503
  Transmission Date: 20160815
  Serious: Yes (Hospitalization)
  Sender: FDA-Public Use
  Company Number: IT-SA-2016SA086160

PATIENT
  Age: 85 Year
  Sex: Female

DRUGS (2)
  1. LUVION [Suspect]
     Active Substance: CANRENONE
     Indication: OEDEMA DUE TO CARDIAC DISEASE
     Route: 048
  2. LASIX [Suspect]
     Active Substance: FUROSEMIDE
     Indication: OEDEMA DUE TO CARDIAC DISEASE
     Route: 048

REACTIONS (1)
  - Acute kidney injury [Unknown]

NARRATIVE: CASE EVENT DATE: 20160415
